FAERS Safety Report 10012519 (Version 1)
Quarter: 2014Q1

REPORT INFORMATION
  Report Type: Spontaneous
  Country: US (occurrence: US)
  Receive Date: 20140312
  Receipt Date: 20140312
  Transmission Date: 20141002
  Serious: No
  Sender: FDA-Public Use
  Company Number: US-PFIZER INC-2014067415

PATIENT
  Age: 71 Year
  Sex: Male

DRUGS (8)
  1. LIPITOR [Suspect]
     Dosage: 40 MG, 1X/DAY (HS)
  2. VIAGRA [Suspect]
     Dosage: 100 MG, AS NEEDED
  3. INDOMETHACIN [Suspect]
     Dosage: UNK
  4. BENICAR HCT [Suspect]
     Dosage: [HYDROCHLOROTHIAZIDE 25/ OLMESARTAN MEDOXOMIL 40], 1X/DAY (1 TAB DAY)
  5. NEXIUM [Suspect]
     Dosage: UNK
  6. NORCO [Suspect]
     Dosage: [HYDROCODONE BITARTRATE 10/ PARACETAMOL 325], 1X/DAY (PM)
  7. ASA [Suspect]
     Dosage: UNK
  8. BYSTOLIC [Suspect]
     Dosage: 5 MG, 1X/DAY

REACTIONS (1)
  - Drug hypersensitivity [Unknown]
